FAERS Safety Report 6958521-3 (Version None)
Quarter: 2010Q3

REPORT INFORMATION
  Report Type: 
  Country: None (occurrence: None)
  Receive Date: 20100827
  Receipt Date: 20100827
  Transmission Date: 20110219
  Serious: Yes (Other)
  Sender: FDA-Public Use
  Company Number: None

PATIENT
  Sex: Female
  Weight: 62.3696 kg

DRUGS (1)
  1. DISOPYRAMIDE [Suspect]
     Indication: HEART RATE IRREGULAR
     Dosage: 1 CAPS. 2 X DAILY
     Dates: start: 20100202, end: 20100625

REACTIONS (13)
  - ALOPECIA [None]
  - ASTHENIA [None]
  - BALANCE DISORDER [None]
  - CONSTIPATION [None]
  - DEAFNESS [None]
  - DECREASED APPETITE [None]
  - DIZZINESS [None]
  - DRY MOUTH [None]
  - DYSPEPSIA [None]
  - DYSPNOEA [None]
  - FATIGUE [None]
  - MICTURITION DISORDER [None]
  - VISION BLURRED [None]
